FAERS Safety Report 23510356 (Version 2)
Quarter: 2024Q1

REPORT INFORMATION
  Report Type: Report from Study
  Country: US (occurrence: US)
  Receive Date: 20240211
  Receipt Date: 20240214
  Transmission Date: 20240410
  Serious: Yes (Other)
  Sender: FDA-Public Use
  Company Number: US-ABBVIE-5630402

PATIENT
  Age: 69 Year
  Sex: Male

DRUGS (1)
  1. BOTOX [Suspect]
     Active Substance: ONABOTULINUMTOXINA
     Indication: Product used for unknown indication
     Dosage: TIME INTERVAL: AS NECESSARY: DRUG DOSAGE 100 UNITS
     Route: 030
     Dates: start: 20231101, end: 20231101

REACTIONS (5)
  - Cerebrovascular accident [Unknown]
  - Pain in extremity [Unknown]
  - Hemiplegia [Unknown]
  - Drug ineffective [Unknown]
  - Monoplegia [Not Recovered/Not Resolved]

NARRATIVE: CASE EVENT DATE: 20231109
